FAERS Safety Report 6400378-3 (Version None)
Quarter: 2009Q4

REPORT INFORMATION
  Report Type: 
  Country: None (occurrence: None)
  Receive Date: 20091014
  Receipt Date: 20091005
  Transmission Date: 20100525
  Serious: Yes (Other)
  Sender: FDA-Public Use
  Company Number: ES-JNJCH-2009026757

PATIENT
  Age: 20 Year
  Sex: Female

DRUGS (1)
  1. CETIRIZINE HYDROCHLORIDE [Suspect]
     Indication: CONJUNCTIVITIS
     Dosage: TEXT:10 MG
     Route: 048

REACTIONS (2)
  - PRURITUS [None]
  - URTICARIA [None]
